FAERS Safety Report 23355652 (Version 2)
Quarter: 2024Q1

REPORT INFORMATION
  Report Type: Report from Study
  Country: US (occurrence: US)
  Receive Date: 20240102
  Receipt Date: 20240104
  Transmission Date: 20240410
  Serious: No
  Sender: FDA-Public Use
  Company Number: US-ABBVIE-5566711

PATIENT
  Sex: Female

DRUGS (2)
  1. QULIPTA [Suspect]
     Active Substance: ATOGEPANT
     Indication: Headache
     Dosage: INCREASED DOSE
     Route: 048
     Dates: start: 2023
  2. QULIPTA [Suspect]
     Active Substance: ATOGEPANT
     Indication: Headache
     Dosage: FORM STRENGTH: 30 MILLIGRAM
     Route: 048
     Dates: start: 20220929, end: 2023

REACTIONS (12)
  - Ophthalmic migraine [Not Recovered/Not Resolved]
  - Hypoaesthesia [Unknown]
  - Hypophagia [Unknown]
  - Infection [Unknown]
  - Balance disorder [Unknown]
  - Food poisoning [Unknown]
  - Migraine [Not Recovered/Not Resolved]
  - Weight decreased [Unknown]
  - Speech disorder [Unknown]
  - Head discomfort [Unknown]
  - Hypoaesthesia oral [Unknown]
  - Illness [Unknown]

NARRATIVE: CASE EVENT DATE: 20230101
